FAERS Safety Report 20113085 (Version 1)
Quarter: 2021Q4

REPORT INFORMATION
  Report Type: Spontaneous
  Country: US (occurrence: US)
  Receive Date: 20211125
  Receipt Date: 20211125
  Transmission Date: 20220303
  Serious: No
  Sender: FDA-Public Use
  Company Number: US-ORGANON-O2111USA001359

PATIENT
  Age: 51 Year
  Sex: Male

DRUGS (7)
  1. DULERA [Suspect]
     Active Substance: FORMOTEROL FUMARATE DIHYDRATE\MOMETASONE FUROATE
     Dosage: TWO PUFFS TWO TIMES PER DAY
  2. SINGULAIR [Suspect]
     Active Substance: MONTELUKAST SODIUM
     Dosage: 10 MILLIGRAM, QD
     Route: 048
  3. CETIRIZINE [Suspect]
     Active Substance: CETIRIZINE HYDROCHLORIDE
     Dosage: 10 MILLIGRAM, QD
  4. HYDROXYZINE [Suspect]
     Active Substance: HYDROXYZINE HYDROCHLORIDE
     Dosage: 25-50 MG NIGHTLY
  5. ALBUTEROL [Suspect]
     Active Substance: ALBUTEROL
     Dosage: 2.5 MG UP TO EVERY 4 HOURS
  6. ALBUTEROL [Suspect]
     Active Substance: ALBUTEROL
     Dosage: 90 MICROG RESCUE INHALER AS NEEDED
  7. TRIAMCINOLONE [Suspect]
     Active Substance: TRIAMCINOLONE
     Dosage: 55 MICROG NASAL SPRAY TWO TIMES PER DAY

REACTIONS (1)
  - Drug ineffective [Unknown]
